FAERS Safety Report 7925936-6 (Version None)
Quarter: 2011Q4

REPORT INFORMATION
  Report Type: 
  Country: None (occurrence: None)
  Receive Date: 20111118
  Receipt Date: 20110414
  Transmission Date: 20120403
  Serious: No
  Sender: FDA-Public Use
  Company Number: US-AMGEN-USASP2011020118

PATIENT
  Age: 26 Year
  Sex: Female

DRUGS (1)
  1. ENBREL [Suspect]
     Indication: FIBROMYALGIA
     Dosage: 50 MG, QWK
     Dates: start: 20110301

REACTIONS (11)
  - INJECTION SITE SWELLING [None]
  - DEPRESSED MOOD [None]
  - BRONCHITIS [None]
  - INJECTION SITE REACTION [None]
  - INJECTION SITE INDURATION [None]
  - ANXIETY [None]
  - INJECTION SITE RASH [None]
  - INJECTION SITE ERYTHEMA [None]
  - BASEDOW'S DISEASE [None]
  - FATIGUE [None]
  - INJECTION SITE PAIN [None]
